FAERS Safety Report 24018160 (Version 1)
Quarter: 2024Q2

REPORT INFORMATION
  Report Type: Spontaneous
  Country: KR (occurrence: KR)
  Receive Date: 20240627
  Receipt Date: 20240627
  Transmission Date: 20240715
  Serious: Yes (Other)
  Sender: FDA-Public Use
  Company Number: KR-BRISTOL-MYERS SQUIBB COMPANY-2024-095175

PATIENT
  Age: 57 Year
  Sex: Male
  Weight: 72.5 kg

DRUGS (11)
  1. SPRYCEL [Suspect]
     Active Substance: DASATINIB
     Indication: Acute lymphocytic leukaemia
     Dosage: 2 DOSAGE FORM
     Dates: start: 20180917, end: 20180930
  2. FAMOTIDINE [Concomitant]
     Active Substance: FAMOTIDINE
     Indication: Product used for unknown indication
     Dosage: INTERVAL: 0.5; INTERVAL UNIT: DAY
     Dates: start: 20180820
  3. METOCLOPRAMIDE HYDROCHLORIDE [Concomitant]
     Active Substance: METOCLOPRAMIDE HYDROCHLORIDE
     Indication: Product used for unknown indication
     Dosage: INTERVAL: 0.25; INTERVAL UNIT: DAY
     Dates: start: 20180921, end: 20181023
  4. ALLOPURINOL [Concomitant]
     Active Substance: ALLOPURINOL
     Indication: Product used for unknown indication
     Dosage: INTERVAL: 0.33; INTERVAL UNIT: DAY
     Dates: start: 20180921, end: 20181025
  5. URSODIOL [Concomitant]
     Active Substance: URSODIOL
     Indication: Liver function test abnormal
     Dosage: INTERVAL: 0.33; INTERVAL UNIT: DAY
     Dates: start: 20180524
  6. FLUDARABINE PHOSPHATE [Concomitant]
     Active Substance: FLUDARABINE PHOSPHATE
     Indication: Product used for unknown indication
  7. POTASSIUM CHLORIDE [Concomitant]
     Active Substance: POTASSIUM CHLORIDE
     Indication: Product used for unknown indication
     Dates: start: 20180704
  8. CEFTRIAXONE SODIUM [Concomitant]
     Active Substance: CEFTRIAXONE SODIUM
     Indication: Agranulocytosis
     Dates: start: 20180917, end: 20180921
  9. CYTARABINE [Concomitant]
     Active Substance: CYTARABINE
     Indication: Product used for unknown indication
     Dates: start: 20180921, end: 20180925
  10. PIPERACILLIN SODIUM\TAZOBACTAM SODIUM [Concomitant]
     Active Substance: PIPERACILLIN SODIUM\TAZOBACTAM SODIUM
     Indication: Agranulocytosis
     Dosage: INTERVAL: 0.25; INTERVAL UNIT: DAY
     Dates: start: 20180921
  11. PREDNISOLONE [Concomitant]
     Active Substance: PREDNISOLONE
     Indication: Acute lymphocytic leukaemia
     Dosage: INTERVAL: 0.5; INTERVAL UNIT: DAY
     Dates: start: 20180923, end: 20180926

REACTIONS (4)
  - Clostridial infection [Recovered/Resolved]
  - Conjunctival haemorrhage [Recovered/Resolved]
  - Herpes virus infection [Recovered/Resolved]
  - Nausea [Recovered/Resolved]

NARRATIVE: CASE EVENT DATE: 20180923
